FAERS Safety Report 19361000 (Version 2)
Quarter: 2021Q2

REPORT INFORMATION
  Report Type: Spontaneous
  Country: CH (occurrence: DE)
  Receive Date: 20210601
  Receipt Date: 20210614
  Transmission Date: 20210717
  Serious: Yes (Hospitalization, Other)
  Sender: FDA-Public Use
  Company Number: CH-009507513-2105CHE007363

PATIENT
  Age: 65 Year
  Sex: Female

DRUGS (2)
  1. LENVATINIB MESYLATE [Suspect]
     Active Substance: LENVATINIB MESYLATE
     Indication: ENDOMETRIAL ADENOCARCINOMA
     Dosage: UNK
     Dates: start: 20210218
  2. PEMBROLIZUMAB. [Suspect]
     Active Substance: PEMBROLIZUMAB
     Indication: ENDOMETRIAL ADENOCARCINOMA
     Dosage: UNK
     Dates: start: 20210218

REACTIONS (5)
  - Radiation proctitis [Unknown]
  - Hypothyroidism [Unknown]
  - Epigastric discomfort [Unknown]
  - Large intestine perforation [Unknown]
  - Peritonitis [Unknown]

NARRATIVE: CASE EVENT DATE: 202104
